FAERS Safety Report 23358003 (Version 1)
Quarter: 2024Q1

REPORT INFORMATION
  Report Type: Spontaneous
  Country: US (occurrence: US)
  Receive Date: 20240102
  Receipt Date: 20240102
  Transmission Date: 20240410
  Serious: No
  Sender: FDA-Public Use
  Company Number: US-BRISTOL-MYERS SQUIBB COMPANY-2023-186568

PATIENT
  Age: 67 Year
  Sex: Male
  Weight: 61.23 kg

DRUGS (2)
  1. SPRYCEL [Suspect]
     Active Substance: DASATINIB
     Indication: Product used for unknown indication
  2. BOSULIF [Concomitant]
     Active Substance: BOSUTINIB MONOHYDRATE
     Indication: Chronic myeloid leukaemia
     Route: 048

REACTIONS (1)
  - Pleural effusion [Unknown]
